FAERS Safety Report 17379982 (Version 1)
Quarter: 2020Q1

REPORT INFORMATION
  Report Type: Spontaneous
  Country: US (occurrence: US)
  Receive Date: 20200122
  Receipt Date: 20200122
  Transmission Date: 20200409
  Serious: No
  Sender: FDA-Public Use
  Company Number: None

PATIENT
  Age: 67 Year
  Sex: Female

DRUGS (1)
  1. CAPECITABINE TAB 500MG [Suspect]
     Active Substance: CAPECITABINE
     Route: 048
     Dates: start: 202001

REACTIONS (7)
  - Herpes zoster [None]
  - Therapy cessation [None]
  - Constipation [None]
  - Furuncle [None]
  - Lung disorder [None]
  - Infection [None]
  - Diarrhoea [None]

NARRATIVE: CASE EVENT DATE: 20200108
